FAERS Safety Report 9728934 (Version 1)
Quarter: 2013Q4

REPORT INFORMATION
  Report Type: Spontaneous
  Country: US (occurrence: US)
  Receive Date: 20131204
  Receipt Date: 20131204
  Transmission Date: 20140711
  Serious: No
  Sender: FDA-Public Use
  Company Number: US-BAYER-2013-148053

PATIENT
  Age: 21 Year
  Sex: Male
  Weight: 79 kg

DRUGS (1)
  1. ALEVE TABLET [Suspect]
     Route: 048

REACTIONS (1)
  - Incorrect dose administered [None]
